FAERS Safety Report 7795761-8 (Version None)
Quarter: 2011Q4

REPORT INFORMATION
  Report Type: 
  Country: None (occurrence: None)
  Receive Date: 20111004
  Receipt Date: 20110923
  Transmission Date: 20120403
  Serious: Yes (Hospitalization, Other)
  Sender: FDA-Public Use
  Company Number: US-ASTRAZENECA-2011SE57545

PATIENT
  Age: 64 Year
  Sex: Female
  Weight: 63.5 kg

DRUGS (11)
  1. SEROQUEL XR [Suspect]
     Indication: BIPOLAR DISORDER
     Route: 048
     Dates: start: 20010101
  2. SEROQUEL XR [Suspect]
     Route: 048
     Dates: start: 20010101
  3. RAMPAMIL ER [Concomitant]
  4. CALCIUM CARBONATE [Concomitant]
     Indication: VITAMIN SUPPLEMENTATION
  5. SEROQUEL XR [Suspect]
     Indication: SLEEP DISORDER
     Route: 048
     Dates: start: 20010101
  6. METFORMIN HCL [Concomitant]
     Indication: DIABETES MELLITUS
  7. CLONAZEPAM [Concomitant]
     Indication: ANXIETY
  8. TRAZASTATIN [Concomitant]
  9. SEROQUEL XR [Suspect]
     Route: 048
     Dates: start: 20010101
  10. POTASSIUM [Concomitant]
  11. LISINOPRIL [Concomitant]

REACTIONS (7)
  - HYPERTENSION [None]
  - NERVOUSNESS [None]
  - SPINAL OSTEOARTHRITIS [None]
  - MENTAL DISORDER [None]
  - MIGRAINE [None]
  - DIABETES MELLITUS [None]
  - PARALYSIS [None]
